FAERS Safety Report 8180283-5 (Version None)
Quarter: 2012Q1

REPORT INFORMATION
  Report Type: 
  Country: None (occurrence: None)
  Receive Date: 20120302
  Receipt Date: 20120228
  Transmission Date: 20120608
  Serious: Yes (Hospitalization, Disabling, Other)
  Sender: FDA-Public Use
  Company Number: PHHO2012IT000800

PATIENT
  Sex: Female
  Weight: 79 kg

DRUGS (8)
  1. LASIX [Concomitant]
     Indication: HYPERTENSION
     Dosage: 25 MG, TID
     Route: 048
     Dates: start: 20010314
  2. OXYGEN [Concomitant]
     Indication: RESPIRATORY FAILURE
  3. EVEROLIMUS [Suspect]
     Indication: LYMPHANGIOLEIOMYOMATOSIS
     Dosage: 10 MG, UNK
     Route: 048
     Dates: start: 20110325
  4. SPIRIVA [Concomitant]
     Indication: CHRONIC OBSTRUCTIVE PULMONARY DISEASE
     Dosage: 181 MG, QD
     Dates: start: 20060517
  5. DRONAL [Concomitant]
     Indication: OSTEOPOROSIS
     Dosage: 70 ML, QW
     Dates: start: 20100427
  6. TICLID [Concomitant]
     Indication: PROPHYLAXIS
     Dosage: 25 MG, BID
     Route: 048
     Dates: start: 20010314
  7. FLUTICASONE PROPIONATE/SALMETEROL [Concomitant]
     Indication: CHRONIC OBSTRUCTIVE PULMONARY DISEASE
     Dosage: 51/250
     Dates: start: 20110505
  8. OXYGEN [Concomitant]
     Indication: CHRONIC OBSTRUCTIVE PULMONARY DISEASE
     Dosage: 2.5 L/ MIN
     Dates: start: 20050607

REACTIONS (5)
  - DIABETES MELLITUS [None]
  - TACHYCARDIA [None]
  - OEDEMA PERIPHERAL [None]
  - BRONCHITIS [None]
  - CARDIAC FAILURE [None]
